FAERS Safety Report 18146195 (Version 1)
Quarter: 2020Q3

REPORT INFORMATION
  Report Type: Spontaneous
  Country: US (occurrence: US)
  Receive Date: 20200813
  Receipt Date: 20200813
  Transmission Date: 20201103
  Serious: No
  Sender: FDA-Public Use
  Company Number: US-009507513-2007USA005772

PATIENT
  Age: 92 Year
  Sex: Male

DRUGS (11)
  1. GABAPENTIN. [Suspect]
     Active Substance: GABAPENTIN
     Indication: IMMUNE SYSTEM DISORDER
     Dosage: UNK
  2. DIPHENHYDRAMINE. [Suspect]
     Active Substance: DIPHENHYDRAMINE
     Indication: IMMUNE SYSTEM DISORDER
     Dosage: UNK
  3. FEXOFENADINE HYDROCHLORIDE. [Suspect]
     Active Substance: FEXOFENADINE HYDROCHLORIDE
     Indication: IMMUNE SYSTEM DISORDER
     Dosage: UNK
  4. REMERON [Suspect]
     Active Substance: MIRTAZAPINE
     Indication: IMMUNE SYSTEM DISORDER
     Dosage: UNK
     Route: 048
  5. PERMETHRIN. [Suspect]
     Active Substance: PERMETHRIN
     Indication: IMMUNE SYSTEM DISORDER
     Dosage: UNK
  6. STROMECTOL [Suspect]
     Active Substance: IVERMECTIN
     Indication: IMMUNE SYSTEM DISORDER
     Dosage: UNK
     Route: 048
  7. CARBIDOPA. [Concomitant]
     Active Substance: CARBIDOPA
     Indication: PARKINSON^S DISEASE
  8. CETIRIZINE HYDROCHLORIDE. [Suspect]
     Active Substance: CETIRIZINE HYDROCHLORIDE
     Indication: IMMUNE SYSTEM DISORDER
     Dosage: UNK
  9. DOXEPIN HYDROCHLORIDE. [Suspect]
     Active Substance: DOXEPIN HYDROCHLORIDE
     Indication: IMMUNE SYSTEM DISORDER
     Dosage: UNK
  10. HYDROXYZINE [Suspect]
     Active Substance: HYDROXYZINE HYDROCHLORIDE
     Indication: IMMUNE SYSTEM DISORDER
     Dosage: UNK
  11. CORTICOSTEROIDS (UNSPECIFIED) [Suspect]
     Active Substance: UNSPECIFIED INGREDIENT
     Indication: IMMUNE SYSTEM DISORDER
     Dosage: UNK
     Route: 061

REACTIONS (1)
  - Product use in unapproved indication [Unknown]
